FAERS Safety Report 5234406-8 (Version None)
Quarter: 2007Q1

REPORT INFORMATION
  Report Type: 
  Country: None (occurrence: None)
  Receive Date: 20070209
  Receipt Date: 20070129
  Transmission Date: 20070707
  Serious: Yes (Life-Threatening)
  Sender: FDA-Public Use
  Company Number: JP-ROCHE-481081

PATIENT
  Age: 88 Year
  Sex: Female
  Weight: 30 kg

DRUGS (5)
  1. ROCEPHIN [Suspect]
     Indication: PNEUMONIA ASPIRATION
     Route: 041
     Dates: start: 20070122, end: 20070124
  2. BUFFERIN [Concomitant]
     Dosage: THE DRUG WAS REPORTED AS: BUFFERIN 81 MG.
     Route: 048
     Dates: start: 20061218
  3. TICLOPIDINE HYDROCHLORIDE [Concomitant]
     Dosage: GENERIC REPORTED AS TICLOPIDINE HYDROCHLORIDE. FORM REPORTED AS: ORAL FORMULATION (NOT OTHERWISE SP+
     Route: 048
     Dates: start: 20061218
  4. PLAVIX [Concomitant]
     Route: 048
     Dates: start: 20061218
  5. CIPROFLOXACIN [Concomitant]

REACTIONS (1)
  - HAEMOLYSIS [None]
